FAERS Safety Report 17756424 (Version 1)
Quarter: 2020Q2

REPORT INFORMATION
  Report Type: Spontaneous
  Country: FR (occurrence: FR)
  Receive Date: 20200507
  Receipt Date: 20200507
  Transmission Date: 20200714
  Serious: Yes (Hospitalization)
  Sender: FDA-Public Use
  Company Number: FR-CADILA HEALTHCARE LIMITED-FR-ZYDUS-022467

PATIENT

DRUGS (7)
  1. VENLAFAXINE [Suspect]
     Active Substance: VENLAFAXINE HYDROCHLORIDE
     Indication: PRODUCT USED FOR UNKNOWN INDICATION
     Dosage: 75 MILLIGRAM,(INTERVAL :1 DAYS)
     Route: 048
     Dates: start: 20180118, end: 20180209
  2. CLAMOXYL (FRANCE) [Suspect]
     Active Substance: AMOXICILLIN
     Indication: INFECTION
     Dosage: 4.5 GRAM,(INTERVAL :1 DAYS)
     Route: 048
     Dates: start: 20180207, end: 20180209
  3. KARDEGIC [Concomitant]
     Active Substance: ASPIRIN DL-LYSINE
  4. CEFTOLOZANE,TAZOBACTAM [Suspect]
     Active Substance: CEFTOLOZANE SULFATE\TAZOBACTAM SODIUM
     Indication: INFECTION
     Dosage: 3 GRAM,(INTERVAL :1 DAYS)
     Route: 042
     Dates: start: 20180126, end: 20180208
  5. LANSOPRAZOL [Concomitant]
     Active Substance: LANSOPRAZOLE
  6. TAVANIC [Suspect]
     Active Substance: LEVOFLOXACIN
     Indication: INFECTION
     Dosage: 500 MILLIGRAM,(INTERVAL :1 DAYS)
     Route: 048
     Dates: start: 20180129, end: 20180203
  7. IRBESARTAN. [Concomitant]
     Active Substance: IRBESARTAN

REACTIONS (3)
  - Generalised tonic-clonic seizure [Recovering/Resolving]
  - Epilepsy [Recovering/Resolving]
  - Status epilepticus [Recovering/Resolving]

NARRATIVE: CASE EVENT DATE: 20180203
